FAERS Safety Report 23757563 (Version 1)
Quarter: 2024Q2

REPORT INFORMATION
  Report Type: Spontaneous
  Country: US (occurrence: None)
  Receive Date: 20240418
  Receipt Date: 20240418
  Transmission Date: 20240716
  Serious: Yes (Death, Hospitalization)
  Sender: FDA-Public Use
  Company Number: None

PATIENT
  Age: 61 Year
  Sex: Female
  Weight: 78.6 kg

DRUGS (1)
  1. TEMOZOLOMIDE [Suspect]
     Active Substance: TEMOZOLOMIDE
     Dates: end: 20240313

REACTIONS (5)
  - Thrombocytopenia [None]
  - Therapy interrupted [None]
  - General physical health deterioration [None]
  - Magnetic resonance imaging head abnormal [None]
  - Disease progression [None]

NARRATIVE: CASE EVENT DATE: 20240412
